FAERS Safety Report 6316077-2 (Version None)
Quarter: 2009Q3

REPORT INFORMATION
  Report Type: 
  Country: None (occurrence: None)
  Receive Date: 20090820
  Receipt Date: 20090811
  Transmission Date: 20100115
  Serious: Yes (Other)
  Sender: FDA-Public Use
  Company Number: PHHY2009IT34186

PATIENT
  Sex: Male

DRUGS (2)
  1. ZOMETA [Suspect]
     Indication: METASTASES TO KIDNEY
     Dosage: 4 MG, QMO
     Route: 042
     Dates: start: 20071101, end: 20090805
  2. NEXAVAR [Concomitant]
     Dosage: 200 MG FILM COATED TABLETS

REACTIONS (1)
  - OSTEOMYELITIS [None]
